FAERS Safety Report 7920281-7 (Version None)
Quarter: 2011Q4

REPORT INFORMATION
  Report Type: 
  Country: None (occurrence: None)
  Receive Date: 20111117
  Receipt Date: 20111109
  Transmission Date: 20120403
  Serious: Yes (Hospitalization, Other)
  Sender: FDA-Public Use
  Company Number: US-BAYER-201012084NA

PATIENT
  Age: 71 Year
  Sex: Female
  Weight: 182 kg

DRUGS (24)
  1. AMICAR [Concomitant]
     Dosage: 5 UNK, UNK
     Route: 042
     Dates: start: 20071026
  2. MAGNESIUM SULFATE [Concomitant]
     Dosage: 2 G, UNK
     Route: 042
     Dates: start: 20071026
  3. NEXIUM [Concomitant]
     Dosage: 40 MG, QD
     Route: 048
  4. METFORMIN HCL [Concomitant]
     Dosage: 1000 MG, BID
     Route: 048
  5. FENTANYL [Concomitant]
     Dosage: 1250MGS
     Route: 042
     Dates: start: 20071026
  6. CONTRAST MEDIA [Concomitant]
     Indication: CATHETERISATION CARDIAC
  7. CORDARONE [Concomitant]
  8. SODIUM BICARBONATE [Concomitant]
     Dosage: 80 MEQ, UNK
     Route: 042
     Dates: start: 20071026
  9. SYNTHROID [Concomitant]
     Dosage: 0.025 MG, QD
     Route: 048
  10. TRASYLOL [Suspect]
     Indication: CORONARY ARTERY BYPASS
     Dosage: UNK
     Route: 042
     Dates: start: 20071026
  11. ZINACEF [Concomitant]
     Dosage: 1.5 G, UNK
     Route: 042
     Dates: start: 20071026
  12. HEPARIN [Concomitant]
     Dosage: 100 MG, UNK
     Route: 042
     Dates: start: 20071026
  13. LASIX [Concomitant]
     Dosage: 40 MG, QD
     Route: 048
  14. RED BLOOD CELLS [Concomitant]
  15. CARDIZEM [Concomitant]
     Dosage: 1MG/CC, 20CC
     Route: 042
     Dates: start: 20071026
  16. PROTAMINE SULFATE [Concomitant]
     Dosage: 350MG
     Route: 042
     Dates: start: 20071026
  17. LIDOCAINE [Concomitant]
     Dosage: 50 MG, UNK
     Route: 042
     Dates: start: 20071026
  18. CALCIUM CHLORIDE DIHYDRATE [Concomitant]
     Dosage: 1 G, UNK
     Route: 042
     Dates: start: 20071026
  19. ENALAPRIL MALEATE [Concomitant]
     Dosage: 5 MG, QD
     Route: 048
  20. LIPITOR [Concomitant]
     Dosage: 20 MG, QD
     Route: 048
  21. HEPARIN [Concomitant]
     Dosage: 26,000 UNITS
     Route: 042
     Dates: start: 20071026
  22. TRASYLOL [Suspect]
     Dosage: UNK
     Route: 042
     Dates: start: 19960422
  23. INSULIN [Concomitant]
     Dosage: 20 U, UNK
     Route: 042
     Dates: start: 20071026
  24. PREDNISONE TAB [Concomitant]
     Dosage: 25 MG, QOD
     Route: 048

REACTIONS (16)
  - CEREBROVASCULAR ACCIDENT [None]
  - STRESS [None]
  - ANXIETY [None]
  - INCONTINENCE [None]
  - EMOTIONAL DISTRESS [None]
  - RENAL FAILURE [None]
  - AMNESIA [None]
  - RENAL IMPAIRMENT [None]
  - RENAL INJURY [None]
  - DEMENTIA [None]
  - UNEVALUABLE EVENT [None]
  - FEAR [None]
  - ANHEDONIA [None]
  - MULTI-ORGAN FAILURE [None]
  - PAIN [None]
  - INJURY [None]
